FAERS Safety Report 7647306-0 (Version None)
Quarter: 2011Q3

REPORT INFORMATION
  Report Type: 
  Country: None (occurrence: None)
  Receive Date: 20110801
  Receipt Date: 20110720
  Transmission Date: 20111222
  Serious: Yes (Hospitalization)
  Sender: FDA-Public Use
  Company Number: US-ASTRAZENECA-2008UW22595

PATIENT
  Age: 578 Month
  Sex: Female
  Weight: 127 kg

DRUGS (9)
  1. SEROQUEL [Suspect]
     Indication: SCHIZOPHRENIA
     Dosage: 25-300 MG
     Route: 048
     Dates: start: 20040611
  2. WELLBUTRIN [Concomitant]
     Dates: start: 20030101
  3. ZYPREXA [Concomitant]
     Dates: start: 19980326, end: 20031205
  4. HYDROCODONE BITARTRATE AND ACETAMINOPHEN [Concomitant]
     Dosage: 7.5/500 MG 12 HRLY PRN
     Route: 048
     Dates: start: 20040611
  5. SEROQUEL [Suspect]
     Indication: DEPRESSION
     Dosage: 25-300 MG
     Route: 048
     Dates: start: 20040611
  6. ALPRAZOLAM [Concomitant]
     Route: 048
     Dates: start: 20040527
  7. SEROQUEL [Suspect]
     Route: 048
     Dates: start: 20060814
  8. SEROQUEL [Suspect]
     Route: 048
     Dates: start: 20060814
  9. HALDOL [Concomitant]

REACTIONS (2)
  - SHOCK HYPOGLYCAEMIC [None]
  - TYPE 2 DIABETES MELLITUS [None]
